FAERS Safety Report 6972282-3 (Version None)
Quarter: 2010Q3

REPORT INFORMATION
  Report Type: 
  Country: None (occurrence: None)
  Receive Date: 20100909
  Receipt Date: 20100826
  Transmission Date: 20110219
  Serious: Yes (Death)
  Sender: FDA-Public Use
  Company Number: FR-ELI_LILLY_AND_COMPANY-FR201006005762

PATIENT
  Age: 73 Year
  Sex: Male

DRUGS (5)
  1. FORTEO [Suspect]
     Indication: OSTEOPOROSIS
     Dosage: 20 UG, DAILY (1/D)
     Route: 058
     Dates: start: 20090105
  2. CACIT [Concomitant]
     Dosage: UNK, UNKNOWN
     Route: 065
  3. PARLODEL [Concomitant]
     Dosage: UNK, UNKNOWN
     Route: 065
  4. MANTADIX [Concomitant]
     Dosage: UNK, UNKNOWN
     Route: 065
  5. STALEVO 100 [Concomitant]
     Dosage: UNK, UNKNOWN
     Route: 065

REACTIONS (2)
  - COMPLETED SUICIDE [None]
  - PROSTATIC SPECIFIC ANTIGEN INCREASED [None]
